FAERS Safety Report 7406454-0 (Version None)
Quarter: 2011Q2

REPORT INFORMATION
  Report Type: 
  Country: None (occurrence: None)
  Receive Date: 20110411
  Receipt Date: 20110406
  Transmission Date: 20111010
  Serious: Yes (Death)
  Sender: FDA-Public Use
  Company Number: PHHY2011TW20378

PATIENT
  Sex: Male

DRUGS (11)
  1. ASPIRIN [Concomitant]
     Indication: ARTERIOSCLEROSIS CORONARY ARTERY
     Dosage: ONE QD
     Dates: start: 20100511
  2. TAMSULOSIN HYDROCHLORIDE [Concomitant]
     Indication: BENIGN PROSTATIC HYPERPLASIA
     Dosage: ONE TID
     Dates: start: 20100420
  3. DIPHENIDOL HYDROCHLORIDE [Concomitant]
     Indication: DIZZINESS
     Dosage: ONE BID
     Dates: start: 20110111
  4. AMN107 [Suspect]
     Dosage: 400 MG, BID
     Dates: start: 20100525
  5. BISOPROLOL FUMARATE [Concomitant]
     Indication: CARDIAC FAILURE CONGESTIVE
     Dosage: ONE BID
     Dates: start: 20100525
  6. SPIRONOLACTONE [Concomitant]
     Indication: CARDIAC FAILURE CONGESTIVE
     Dosage: ONE QD
     Dates: start: 20100914
  7. FUROSEMIDE [Concomitant]
     Indication: PLEURAL EFFUSION
     Dosage: 1.5 QD
     Dates: start: 20100126
  8. AMN107 [Suspect]
     Indication: CHRONIC MYELOID LEUKAEMIA
     Dosage: 400 MG, UNK
     Route: 048
     Dates: start: 20070703, end: 20100129
  9. MAGNESIUM OXIDE [Concomitant]
     Indication: CONSTIPATION
     Dosage: ONE TID
     Dates: start: 20080708
  10. BROMHEXINE [Concomitant]
     Indication: PLEURAL EFFUSION
     Dosage: ONE TID
     Dates: start: 20091103
  11. ISOSORBIDE DINITRATE [Concomitant]
     Indication: PROPHYLAXIS
     Dosage: ONE QD
     Dates: start: 20100914

REACTIONS (5)
  - CARDIOPULMONARY FAILURE [None]
  - PRODUCTIVE COUGH [None]
  - DYSPNOEA EXERTIONAL [None]
  - PLEURAL EFFUSION [None]
  - DYSPNOEA [None]
